FAERS Safety Report 23909500 (Version 3)
Quarter: 2024Q3

REPORT INFORMATION
  Report Type: Spontaneous
  Country: GB (occurrence: GB)
  Receive Date: 20240528
  Receipt Date: 20240701
  Transmission Date: 20241016
  Serious: Yes (Death, Hospitalization)
  Sender: MYLAN
  Company Number: GB-MYLANLABS-2024M1047915

PATIENT
  Age: 51 Year
  Sex: Male

DRUGS (5)
  1. CLOZARIL [Suspect]
     Active Substance: CLOZAPINE
     Indication: Schizophrenia
     Dosage: 325 MILLIGRAM, QD (125 MG IN MORNING AND 200 MG IN NIGHT)
     Route: 048
     Dates: start: 20130404
  2. SULPIRIDE [Concomitant]
     Active Substance: SULPIRIDE
     Dosage: 400 MILLIGRAM, BID (BD)
     Route: 048
     Dates: start: 20130710
  3. FLUOXETINE [Concomitant]
     Active Substance: FLUOXETINE HYDROCHLORIDE
     Dosage: 60 MILLIGRAM, QD (OD)
     Route: 048
     Dates: start: 20130219
  4. CLONAZEPAM [Concomitant]
     Active Substance: CLONAZEPAM
     Dosage: 500 MICROGRAM, TID (TDS)
     Route: 048
     Dates: start: 20120918
  5. TRIHEXYPHENIDYL [Concomitant]
     Active Substance: TRIHEXYPHENIDYL
     Dosage: 5 MILLIGRAM, BID (BD)
     Route: 048
     Dates: start: 20121210

REACTIONS (4)
  - Death [Fatal]
  - Epiglottitis [Recovering/Resolving]
  - Constipation [Unknown]
  - Salivary hypersecretion [Unknown]

NARRATIVE: CASE EVENT DATE: 20240521
